FAERS Safety Report 14300580 (Version 5)
Quarter: 2018Q1

REPORT INFORMATION
  Report Type: Report from Study
  Country: JP (occurrence: JP)
  Receive Date: 20171219
  Receipt Date: 20180131
  Transmission Date: 20180509
  Serious: Yes (Hospitalization)
  Sender: FDA-Public Use
  Company Number: JP-ROCHE-2035242

PATIENT
  Age: 82 Year
  Sex: Female
  Weight: 49.1 kg

DRUGS (50)
  1. PARIET [Concomitant]
     Active Substance: RABEPRAZOLE SODIUM
     Route: 065
     Dates: start: 20180119
  2. BLOPRESS [Concomitant]
     Active Substance: CANDESARTAN CILEXETIL
     Route: 065
     Dates: start: 20180119
  3. RECALBON (JAPAN) [Concomitant]
     Active Substance: MINODRONIC ACID
     Indication: OSTEOPOROSIS
  4. CEFMETAZOLE [Concomitant]
     Active Substance: CEFMETAZOLE
     Indication: PROPHYLAXIS
     Route: 065
     Dates: start: 20180118, end: 20180118
  5. ATEZOLIZUMAB. [Suspect]
     Active Substance: ATEZOLIZUMAB
     Indication: BREAST CANCER METASTATIC
     Dosage: ON DAYS 1 AND 15 OF EACH 28-DAY CYCLE?MOST RECENT DOSE OF ATEZOLIZUMAB PRIOR TO SAE ONSET ON 14/NOV/
     Route: 042
     Dates: start: 20170502
  6. WARFARIN [Concomitant]
     Active Substance: WARFARIN
     Indication: PULMONARY EMBOLISM
     Route: 065
     Dates: end: 20171206
  7. BEZATOL SR [Concomitant]
     Active Substance: BEZAFIBRATE
     Indication: DEEP VEIN THROMBOSIS
     Route: 065
     Dates: start: 20180119
  8. NIFLAN [Concomitant]
     Active Substance: PRANOPROFEN
     Indication: CONJUNCTIVITIS
     Route: 065
  9. HEPARINOID CREAM [Concomitant]
     Indication: PARONYCHIA
     Route: 065
     Dates: start: 20171211
  10. BESOFTEN [Concomitant]
     Active Substance: PENTOSAN POLYSULFATE SODIUM
     Indication: PARONYCHIA
     Route: 065
     Dates: start: 20171107, end: 20171228
  11. URSO [Concomitant]
     Active Substance: URSODIOL
     Indication: CHOLELITHIASIS
     Route: 065
     Dates: start: 20180111, end: 20180118
  12. PENTAGIN [Concomitant]
     Active Substance: PENTAZOCINE HYDROCHLORIDE
     Indication: BILE DUCT STONE
     Route: 065
     Dates: start: 20180118, end: 20180118
  13. MIRACID [Concomitant]
     Indication: BILE DUCT STONE
     Route: 065
     Dates: start: 20180118, end: 20180121
  14. GENTACIN [Concomitant]
     Active Substance: GENTAMICIN SULFATE
     Indication: PARONYCHIA
     Route: 065
     Dates: start: 20170817, end: 20171117
  15. GENTACIN [Concomitant]
     Active Substance: GENTAMICIN SULFATE
     Route: 065
     Dates: start: 20171228
  16. THYRADIN-S [Concomitant]
     Active Substance: LEVOTHYROXINE
     Indication: HYPOTHYROIDISM
     Route: 065
     Dates: start: 20171107
  17. WHITE PETROLATUM [Concomitant]
     Active Substance: PETROLATUM
     Indication: PROPHYLAXIS
     Route: 065
     Dates: start: 20171216
  18. AZUNOL [Concomitant]
     Active Substance: SODIUM GUALENATE
     Indication: SKIN EXFOLIATION
     Route: 065
     Dates: start: 20180118
  19. LOXOPROFEN NA [Concomitant]
     Active Substance: LOXOPROFEN SODIUM
     Indication: BILE DUCT STONE
     Route: 065
     Dates: start: 20180122
  20. NAB-PACLITAXEL [Suspect]
     Active Substance: PACLITAXEL
     Indication: BREAST CANCER METASTATIC
     Dosage: ON DAYS 1, 8 AND 15 OF EACH 28-DAY CYCLE?MOST RECENT DOSE OF PACLITAXEL ALBUMIN PRIOR TO SAE ONSET
     Route: 042
     Dates: start: 20170502
  21. WARFARIN [Concomitant]
     Active Substance: WARFARIN
     Route: 065
     Dates: start: 20171212, end: 20180109
  22. CEFAZOLIN SODIUM. [Concomitant]
     Active Substance: CEFAZOLIN SODIUM
     Indication: PROPHYLAXIS
     Route: 065
     Dates: start: 20171211
  23. BESOFTEN [Concomitant]
     Active Substance: PENTOSAN POLYSULFATE SODIUM
     Route: 065
     Dates: start: 20171208, end: 20171228
  24. SELBEX [Concomitant]
     Active Substance: TEPRENONE
     Route: 065
     Dates: start: 20180119
  25. URSODEOXYCHOLIC ACID [Concomitant]
     Active Substance: URSODIOL
     Indication: CHOLELITHIASIS
     Route: 065
     Dates: end: 20180111
  26. GRACEVIT [Concomitant]
     Active Substance: SITAFLOXACIN
     Indication: BRONCHITIS CHRONIC
  27. HEPARIN SODIUM. [Concomitant]
     Active Substance: HEPARIN SODIUM
     Indication: PULMONARY EMBOLISM
     Route: 065
     Dates: start: 20171207, end: 20171214
  28. AMLODIPINE [Concomitant]
     Active Substance: AMLODIPINE BESYLATE
     Indication: HYPERTENSION
     Route: 065
  29. ULTIBRO [Concomitant]
     Active Substance: GLYCOPYRRONIUM\INDACATEROL
     Indication: ASTHMA
     Route: 065
  30. PL [Concomitant]
     Active Substance: ACETAMINOPHEN\CAFFEINE\PROMETHAZINE\SALICYLAMIDE
     Indication: BRONCHITIS CHRONIC
     Route: 065
  31. MOHRUS TAPE L [Concomitant]
     Active Substance: KETOPROFEN
     Indication: SPINAL OSTEOARTHRITIS
     Route: 065
  32. RINDERON VG [Concomitant]
     Active Substance: BETAMETHASONE VALERATE\GENTAMICIN SULFATE
     Indication: PARONYCHIA
     Route: 065
     Dates: start: 20171212
  33. MIDAZOLAM [Concomitant]
     Active Substance: MIDAZOLAM HYDROCHLORIDE
     Indication: BILE DUCT STONE
     Route: 065
     Dates: start: 20180118, end: 20180118
  34. FLUITRAN [Suspect]
     Active Substance: TRICHLORMETHIAZIDE
     Indication: HYPERTENSION
     Route: 065
     Dates: end: 20171202
  35. WARFARIN [Concomitant]
     Active Substance: WARFARIN
     Route: 065
     Dates: start: 20180112
  36. BEZATOL SR [Concomitant]
     Active Substance: BEZAFIBRATE
     Indication: HYPERLIPIDAEMIA
     Route: 065
     Dates: end: 20180118
  37. BLOPRESS [Concomitant]
     Active Substance: CANDESARTAN CILEXETIL
     Indication: HYPERTENSION
     Route: 065
     Dates: end: 20180118
  38. MOHRUS TAPE [Concomitant]
     Active Substance: KETOPROFEN
     Indication: OSTEOARTHRITIS
     Route: 065
  39. URSODEOXYCHOLIC ACID [Concomitant]
     Active Substance: URSODIOL
     Route: 065
     Dates: start: 20180119
  40. ACELIO [Concomitant]
     Active Substance: ACETAMINOPHEN
     Indication: BILE DUCT STONE
     Route: 065
     Dates: start: 20180119, end: 20180120
  41. FLUITRAN [Suspect]
     Active Substance: TRICHLORMETHIAZIDE
     Route: 065
     Dates: start: 20171229
  42. PARIET [Concomitant]
     Active Substance: RABEPRAZOLE SODIUM
     Indication: CHRONIC GASTRITIS
     Route: 065
     Dates: start: 20180118
  43. SELBEX [Concomitant]
     Active Substance: TEPRENONE
     Indication: CHRONIC GASTRITIS
     Route: 065
     Dates: end: 20180118
  44. ISODINE [Concomitant]
     Active Substance: POVIDONE-IODINE
     Indication: STOMATITIS
     Route: 065
  45. ZITHROMAC [Concomitant]
     Active Substance: AZITHROMYCIN DIHYDRATE
     Indication: BRONCHITIS CHRONIC
     Dosage: SUSTAINED RELEASE
     Route: 065
  46. KETOPROFEN. [Concomitant]
     Active Substance: KETOPROFEN
     Indication: OSTEOARTHRITIS
     Route: 065
     Dates: start: 20170629
  47. KETOPROFEN. [Concomitant]
     Active Substance: KETOPROFEN
     Route: 065
     Dates: start: 20170629
  48. SOLACET F [Concomitant]
     Route: 065
     Dates: start: 20171211, end: 20171211
  49. RINDERON VG [Concomitant]
     Active Substance: BETAMETHASONE VALERATE\GENTAMICIN SULFATE
     Route: 065
     Dates: start: 20171228
  50. PICILLIBACTA [Concomitant]
     Active Substance: AMPICILLIN SODIUM\SULBACTAM SODIUM
     Indication: PROPHYLAXIS
     Route: 065
     Dates: start: 20180118

REACTIONS (3)
  - Inappropriate antidiuretic hormone secretion [Recovered/Resolved]
  - Dehydration [Recovered/Resolved]
  - Spinal compression fracture [Not Recovered/Not Resolved]

NARRATIVE: CASE EVENT DATE: 20171128
